FAERS Safety Report 9194050 (Version 2)
Quarter: 2013Q2

REPORT INFORMATION
  Report Type: Spontaneous
  Country: US (occurrence: US)
  Receive Date: 20130327
  Receipt Date: 20130522
  Transmission Date: 20140414
  Serious: Yes (Congenital Anomaly)
  Sender: FDA-Public Use
  Company Number: US-US-EMD SERONO, INC.-7047158

PATIENT
  Sex: Female

DRUGS (2)
  1. SAIZEN [(SOMATROPIN (RDNA ORIGIN) FOR INJECTION)] [Suspect]
     Indication: TURNER^S SYNDROME
     Dates: start: 20100929, end: 201103
  2. SAIZEN [(SOMATROPIN (RDNA ORIGIN) FOR INJECTION)] [Suspect]
     Dates: start: 201104

REACTIONS (4)
  - Hydronephrosis [Not Recovered/Not Resolved]
  - Renal fusion anomaly [Not Recovered/Not Resolved]
  - Urinary tract infection [Not Recovered/Not Resolved]
  - Bone pain [Unknown]
